FAERS Safety Report 5707893-6 (Version None)
Quarter: 2008Q2

REPORT INFORMATION
  Report Type: 
  Country: None (occurrence: None)
  Receive Date: 20080414
  Receipt Date: 20080402
  Transmission Date: 20081010
  Serious: Yes (Death, Hospitalization)
  Sender: FDA-Public Use
  Company Number: 2007-00019

PATIENT
  Age: 70 Year
  Sex: Male
  Weight: 69 kg

DRUGS (2)
  1. VELCADE [Suspect]
     Indication: MULTIPLE MYELOMA
     Dosage: 2.40 MG,
     Dates: start: 20061121, end: 20061222
  2. DOXORUBICIN HCL [Suspect]
     Indication: MULTIPLE MYELOMA
     Dates: start: 20061124, end: 20061215

REACTIONS (3)
  - ANEURYSM [None]
  - CEREBRAL HAEMORRHAGE [None]
  - NERVOUS SYSTEM DISORDER [None]
